FAERS Safety Report 9183522 (Version 2)
Quarter: 2013Q2

REPORT INFORMATION
  Report Type: Spontaneous
  Country: MX (occurrence: MX)
  Receive Date: 20130322
  Receipt Date: 20130410
  Transmission Date: 20140414
  Serious: Yes (Hospitalization, Other)
  Sender: FDA-Public Use
  Company Number: PHHY2013MX027774

PATIENT
  Age: 82 Year
  Sex: Male

DRUGS (3)
  1. EXELON PATCH [Suspect]
     Indication: DEMENTIA ALZHEIMER^S TYPE
     Dosage: 3 DF (9.5 MG/10 CM2), DAILY
     Route: 062
     Dates: start: 2006
  2. EBIXA [Concomitant]
     Indication: MEMORY IMPAIRMENT
     Dosage: 2 DF, DAILY
     Dates: start: 2007
  3. PROVIGIL [Concomitant]
     Indication: MEMORY IMPAIRMENT
     Dosage: 1 DF, DAILY
     Dates: start: 2007

REACTIONS (8)
  - Diverticulitis intestinal haemorrhagic [Recovered/Resolved]
  - Dementia Alzheimer^s type [Not Recovered/Not Resolved]
  - Memory impairment [Not Recovered/Not Resolved]
  - Ageusia [Not Recovered/Not Resolved]
  - Irritability [Not Recovered/Not Resolved]
  - Incorrect dose administered [Unknown]
  - Decreased appetite [Not Recovered/Not Resolved]
  - Headache [Not Recovered/Not Resolved]
